FAERS Safety Report 9925622 (Version 1)
Quarter: 2014Q1

REPORT INFORMATION
  Report Type: Spontaneous
  Country: US (occurrence: US)
  Receive Date: 20140226
  Receipt Date: 20140226
  Transmission Date: 20141002
  Serious: Yes (Hospitalization)
  Sender: FDA-Public Use
  Company Number: US-GLAXOSMITHKLINE-A1061346A

PATIENT
  Age: 77 Year
  Sex: Female

DRUGS (4)
  1. ADVAIR [Suspect]
     Indication: ASTHMA
     Dosage: 1PUFF PER DAY
     Route: 055
     Dates: start: 2010
  2. THYROID MEDICATION [Concomitant]
  3. VERAPAMIL [Concomitant]
  4. LISINOPRIL [Concomitant]

REACTIONS (1)
  - Pneumonia [Recovered/Resolved]
